FAERS Safety Report 6626624-9 (Version None)
Quarter: 2010Q1

REPORT INFORMATION
  Report Type: 
  Country: None (occurrence: None)
  Receive Date: 20100309
  Receipt Date: 20100309
  Transmission Date: 20100710
  Serious: Yes (Other)
  Sender: FDA-Public Use
  Company Number: None

PATIENT
  Age: 62 Year
  Sex: Female
  Weight: 77.1115 kg

DRUGS (3)
  1. PRAVASTATIN SODIUM [Suspect]
     Indication: BLOOD CHOLESTEROL INCREASED
     Dosage: 40 MG  1 TABLET AT BEDTIME PO
     Route: 048
     Dates: start: 20071221, end: 20090815
  2. PRAVASTATIN SODIUM [Suspect]
     Indication: BLOOD TRIGLYCERIDES INCREASED
     Dosage: 40 MG  1 TABLET AT BEDTIME PO
     Route: 048
     Dates: start: 20071221, end: 20090815
  3. . [Concomitant]

REACTIONS (7)
  - ARTHRALGIA [None]
  - BLOOD CHOLESTEROL INCREASED [None]
  - MYALGIA [None]
  - PAIN IN EXTREMITY [None]
  - PARALYSIS [None]
  - RHABDOMYOLYSIS [None]
  - URTICARIA [None]
